FAERS Safety Report 4699165-6 (Version None)
Quarter: 2005Q2

REPORT INFORMATION
  Report Type: 
  Country: None (occurrence: None)
  Receive Date: 20050624
  Receipt Date: 20050615
  Transmission Date: 20051028
  Serious: Yes (Death)
  Sender: FDA-Public Use
  Company Number: US-ABBOTT-05P-163-0303473-00

PATIENT
  Sex: Male

DRUGS (1)
  1. ULTANE [Suspect]
     Indication: DRUG USE FOR UNKNOWN INDICATION
     Route: 055
     Dates: end: 20050601

REACTIONS (2)
  - INTENTIONAL MISUSE [None]
  - OVERDOSE [None]
